FAERS Safety Report 5156591-9 (Version None)
Quarter: 2006Q4

REPORT INFORMATION
  Report Type: 
  Country: None (occurrence: None)
  Receive Date: 20061115
  Receipt Date: 20061101
  Transmission Date: 20070319
  Serious: Yes (Hospitalization, Other)
  Sender: FDA-Public Use
  Company Number: 231034

PATIENT
  Age: 40 Year
  Sex: Female
  Weight: 79.8 kg

DRUGS (5)
  1. HERCEPTIN [Suspect]
     Indication: BREAST CANCER
     Dosage: 594 MG, SINGLE, INTRAVENOUS, 480 MG, Q3W, INTRAVENOUS
     Route: 042
     Dates: start: 20060531
  2. HERCEPTIN [Suspect]
     Indication: BREAST CANCER
     Dosage: 594 MG, SINGLE, INTRAVENOUS, 480 MG, Q3W, INTRAVENOUS
     Route: 042
     Dates: start: 20060531
  3. TELITHROMYCIN [Concomitant]
  4. ATIVAN [Concomitant]
  5. ZOLOFT [Concomitant]

REACTIONS (8)
  - CARDIAC ARREST [None]
  - DIZZINESS [None]
  - FALL [None]
  - FEELING HOT [None]
  - LOSS OF CONSCIOUSNESS [None]
  - NAUSEA [None]
  - SINUS ARREST [None]
  - SYNCOPE [None]
